FAERS Safety Report 6232389-5 (Version None)
Quarter: 2009Q2

REPORT INFORMATION
  Report Type: 
  Country: None (occurrence: None)
  Receive Date: 20090617
  Receipt Date: 20090608
  Transmission Date: 20091009
  Serious: No
  Sender: FDA-Public Use
  Company Number: PHHY2009BR22769

PATIENT
  Age: 74 Year
  Sex: Female
  Weight: 80 kg

DRUGS (4)
  1. ZELMAC [Suspect]
     Indication: CONSTIPATION
     Dosage: 1 TABLET PER DAY
     Route: 048
     Dates: start: 20070101
  2. SYNTHROID [Concomitant]
     Dosage: 175MG, 1 TABLET PER DAY
     Route: 048
  3. HUMAN-INSULIN [Concomitant]
     Indication: DIABETES MELLITUS
     Dosage: 1000MG
  4. TENSANTIN [Concomitant]
     Dosage: UNK

REACTIONS (6)
  - ANAL HAEMORRHAGE [None]
  - CHEST PAIN [None]
  - DRUG ADMINISTRATION ERROR [None]
  - ENEMA ADMINISTRATION [None]
  - FAECES HARD [None]
  - PAINFUL DEFAECATION [None]
